FAERS Safety Report 7745189-1 (Version None)
Quarter: 2011Q3

REPORT INFORMATION
  Report Type: 
  Country: None (occurrence: None)
  Receive Date: 20110907
  Receipt Date: 20110830
  Transmission Date: 20111222
  Serious: Yes (Hospitalization, Other)
  Sender: FDA-Public Use
  Company Number: US-000293

PATIENT
  Sex: Female
  Weight: 51 kg

DRUGS (11)
  1. NAGLAZYME [Suspect]
     Indication: MUCOPOLYSACCHARIDOSIS VI
     Dosage: (1 MG/KG 1X/WEEK INTRAVENOUS DRIP)
     Route: 041
     Dates: start: 20051201
  2. SERTRALINE HYDROCHLORIDE [Concomitant]
  3. NEURONTIN [Concomitant]
  4. BISACODYL [Concomitant]
  5. DAYPRO [Concomitant]
  6. CYCLOBENZAPRINE [Concomitant]
  7. ANTIHISTAMINES [Concomitant]
  8. CONJUGATED ESTROGENS [Concomitant]
  9. LORTAB [Concomitant]
  10. MILK OF MAGNESIA TAB [Concomitant]
  11. ACTONEL [Concomitant]

REACTIONS (4)
  - CERVICAL SPINAL STENOSIS [None]
  - CERVICAL MYELOPATHY [None]
  - NEUROGENIC BLADDER [None]
  - SPINAL OSTEOARTHRITIS [None]
